FAERS Safety Report 11549585 (Version 2)
Quarter: 2016Q1

REPORT INFORMATION
  Report Type: Spontaneous
  Country: US (occurrence: US)
  Receive Date: 20150924
  Receipt Date: 20160120
  Transmission Date: 20160525
  Serious: No
  Sender: FDA-Public Use
  Company Number: US-INCYTE CORPORATION-2015IN003494

PATIENT
  Sex: Male

DRUGS (12)
  1. LOPRESSOR [Concomitant]
     Active Substance: METOPROLOL TARTRATE
  2. VITAMIN B12 [Concomitant]
     Active Substance: CYANOCOBALAMIN
  3. JAKAFI [Suspect]
     Active Substance: RUXOLITINIB
     Dosage: 15 MG, BID
     Route: 048
  4. ATORVASTATIN [Concomitant]
     Active Substance: ATORVASTATIN
  5. TRAMADOL. [Concomitant]
     Active Substance: TRAMADOL
  6. GABAPENTIN. [Concomitant]
     Active Substance: GABAPENTIN
  7. NAPROXEN. [Concomitant]
     Active Substance: NAPROXEN
  8. XANAX [Concomitant]
     Active Substance: ALPRAZOLAM
  9. NEURONTIN [Concomitant]
     Active Substance: GABAPENTIN
  10. AMITRIPTYLINE [Concomitant]
     Active Substance: AMITRIPTYLINE
  11. LISINOPRIL. [Concomitant]
     Active Substance: LISINOPRIL
  12. JAKAFI [Suspect]
     Active Substance: RUXOLITINIB
     Indication: MYELOFIBROSIS
     Dosage: 15 MG, BID
     Route: 048

REACTIONS (7)
  - Joint swelling [Unknown]
  - Rash [Unknown]
  - Gait disturbance [Unknown]
  - Skin burning sensation [Unknown]
  - Neuropathy peripheral [Unknown]
  - Pruritus [Unknown]
  - Neoplasm skin [Unknown]
